FAERS Safety Report 8512417 (Version 2)
Quarter: 2013Q3

REPORT INFORMATION
  Report Type: Spontaneous
  Country: US (occurrence: US)
  Receive Date: 20120413
  Receipt Date: 20130828
  Transmission Date: 20140515
  Serious: No
  Sender: FDA-Public Use
  Company Number: US-ASTRAZENECA-2011SE36688

PATIENT
  Age: 55 Year
  Sex: Female

DRUGS (1)
  1. NEXIUM [Suspect]
     Indication: GASTROOESOPHAGEAL REFLUX DISEASE
     Route: 048

REACTIONS (6)
  - Gastrooesophageal reflux disease [Unknown]
  - Dyspepsia [Unknown]
  - Mastication disorder [Unknown]
  - Dysphagia [Unknown]
  - Intentional drug misuse [Unknown]
  - Drug dose omission [Unknown]
